FAERS Safety Report 13668971 (Version 5)
Quarter: 2018Q1

REPORT INFORMATION
  Report Type: Spontaneous
  Country: CA (occurrence: CA)
  Receive Date: 20170620
  Receipt Date: 20180315
  Transmission Date: 20180508
  Serious: Yes (Hospitalization, Other)
  Sender: FDA-Public Use
  Company Number: CA-PFIZER INC-2017262455

PATIENT
  Age: 53 Year
  Sex: Female

DRUGS (10)
  1. SOMAVERT [Suspect]
     Active Substance: PEGVISOMANT
     Indication: ACROMEGALY
     Dosage: 40 MG, DAILY
     Route: 058
     Dates: start: 20170609, end: 20170609
  2. CENTRUM WOMEN 50+ [Concomitant]
     Dosage: 1 DF(TABLET), DAILY
     Route: 048
  3. TYLENOL [Concomitant]
     Active Substance: ACETAMINOPHEN
     Indication: HEADACHE
     Dosage: UNK, AS NEEDED
     Route: 048
  4. AMLODIPINE [Concomitant]
     Active Substance: AMLODIPINE BESYLATE
     Indication: HYPERTENSION
     Dosage: 10 MG, DAILY
     Route: 048
  5. IBUPROFEN. [Concomitant]
     Active Substance: IBUPROFEN
     Indication: HEADACHE
     Dosage: 400 MG, AS NEEDED
     Route: 048
  6. TRIAMTERENE AND HYDROCHLOROTHIAZID [Concomitant]
     Active Substance: HYDROCHLOROTHIAZIDE\TRIAMTERENE
     Indication: HYPERTENSION
     Dosage: 25 MG, DAILY
     Route: 048
  7. SANDOSTATIN [Concomitant]
     Active Substance: OCTREOTIDE ACETATE
     Dosage: 40 MG, EVERY 28 DAYS
     Route: 030
     Dates: end: 20170215
  8. EURO DOCUSATE C [Concomitant]
     Indication: CONSTIPATION
     Dosage: 100 MG, 2X/DAY
     Route: 048
     Dates: start: 201706, end: 2018
  9. SOMAVERT [Suspect]
     Active Substance: PEGVISOMANT
     Dosage: 10 MG, DAILY
     Route: 058
     Dates: start: 20170610
  10. SYNTHROID [Concomitant]
     Active Substance: LEVOTHYROXINE SODIUM
     Indication: HYPOTHYROIDISM
     Dosage: 0.112 MG, DAILY
     Route: 048

REACTIONS (6)
  - Peripheral swelling [Not Recovered/Not Resolved]
  - Hepatic mass [Not Recovered/Not Resolved]
  - Abdominal pain [Recovered/Resolved]
  - Haemoglobin abnormal [Unknown]
  - Iron deficiency [Unknown]
  - Condition aggravated [Not Recovered/Not Resolved]
